FAERS Safety Report 5041229-1 (Version None)
Quarter: 2006Q3

REPORT INFORMATION
  Report Type: 
  Country: None (occurrence: None)
  Receive Date: 20060703
  Receipt Date: 20060627
  Transmission Date: 20061208
  Serious: Yes (Hospitalization)
  Sender: FDA-Public Use
  Company Number: JP-JPN-A200602321

PATIENT
  Age: 84 Year
  Sex: Male

DRUGS (10)
  1. FLUTIDE [Suspect]
     Route: 055
  2. ERYTHROMYCIN [Concomitant]
     Route: 065
  3. UNICON [Concomitant]
     Route: 048
  4. NORVASC [Concomitant]
     Route: 048
  5. MUCOSAL [Concomitant]
     Route: 048
  6. HYDERGINE [Concomitant]
     Route: 060
  7. CHINESE HERBAL MEDICINE [Concomitant]
     Route: 048
  8. HOKUNALIN [Concomitant]
     Route: 062
  9. NEO UMOR [Concomitant]
     Route: 048
  10. MAGNESIUM OXIDE [Concomitant]
     Route: 048

REACTIONS (3)
  - DIZZINESS [None]
  - FACE OEDEMA [None]
  - OEDEMA PERIPHERAL [None]
